FAERS Safety Report 18546949 (Version 1)
Quarter: 2020Q4

REPORT INFORMATION
  Report Type: Spontaneous
  Country: BR (occurrence: BR)
  Receive Date: 20201125
  Receipt Date: 20201125
  Transmission Date: 20210114
  Serious: Yes (Other)
  Sender: FDA-Public Use
  Company Number: NVSC2020BR305564

PATIENT
  Age: 48 Year
  Sex: Female

DRUGS (6)
  1. LETROZOLE. [Concomitant]
     Active Substance: LETROZOLE
     Indication: HORMONE THERAPY
     Dosage: 2.5 MG, QD
     Route: 048
     Dates: start: 20200220
  2. ZOLEDRONIC ACID [Concomitant]
     Active Substance: ZOLEDRONIC ACID
     Indication: HORMONE THERAPY
     Dosage: 4 MG, EVERY 28 DAYS
     Route: 042
     Dates: start: 20200220
  3. ZOLADEX [Concomitant]
     Active Substance: GOSERELIN ACETATE
     Indication: HORMONE THERAPY
     Dosage: 3.6 MG, EVERY 28 DAYS
     Route: 058
     Dates: start: 20200220
  4. RIBOCICLIB. [Concomitant]
     Active Substance: RIBOCICLIB
     Indication: HORMONE THERAPY
     Dosage: 600 MG, EVERY 28 DAYS
     Route: 048
     Dates: start: 20200220
  5. LOSARTAN. [Suspect]
     Active Substance: LOSARTAN
     Indication: SUBARACHNOID HAEMORRHAGE
     Dosage: 5 MG, BID
     Route: 065
  6. CIPROFIBRATE [Suspect]
     Active Substance: CIPROFIBRATE
     Indication: HYPERTRIGLYCERIDAEMIA
     Dosage: 100 MG (MID)
     Route: 065

REACTIONS (2)
  - Neutropenia [Unknown]
  - Electrocardiogram QT prolonged [Unknown]
